FAERS Safety Report 11811358 (Version 1)
Quarter: 2015Q4

REPORT INFORMATION
  Report Type: Report from Study
  Country: CN (occurrence: CN)
  Receive Date: 20151208
  Receipt Date: 20151208
  Transmission Date: 20160305
  Serious: Yes (Other)
  Sender: FDA-Public Use
  Company Number: CN-BRISTOL-MYERS SQUIBB COMPANY-BMS-2015-079144

PATIENT
  Age: 56 Year
  Sex: Female
  Weight: 46 kg

DRUGS (1)
  1. CETUXIMAB [Suspect]
     Active Substance: CETUXIMAB
     Indication: COLORECTAL CANCER
     Dosage: 500 MG/M2, Q2WK
     Route: 065
     Dates: start: 20150424

REACTIONS (3)
  - Cancer surgery [Unknown]
  - Pyrexia [Unknown]
  - White blood cell disorder [Unknown]

NARRATIVE: CASE EVENT DATE: 2015
